FAERS Safety Report 13707002 (Version 3)
Quarter: 2018Q1

REPORT INFORMATION
  Report Type: Report from Study
  Country: JP (occurrence: JP)
  Receive Date: 20170630
  Receipt Date: 20180119
  Transmission Date: 20180508
  Serious: Yes (Hospitalization)
  Sender: FDA-Public Use
  Company Number: JP-ASTRAZENECA-2017SE67322

PATIENT
  Age: 27584 Day
  Sex: Male

DRUGS (139)
  1. BIOFERMIN [Concomitant]
     Active Substance: BACILLUS SUBTILIS\LACTOBACILLUS ACIDOPHILUS\STREPTOCOCCUS FAECAIS
     Indication: PROPHYLAXIS
     Route: 048
     Dates: end: 20170329
  2. LORATADINE. [Concomitant]
     Active Substance: LORATADINE
     Indication: RASH
     Route: 048
     Dates: start: 20161118, end: 20161231
  3. LORATADINE. [Concomitant]
     Active Substance: LORATADINE
     Indication: RHINITIS ALLERGIC
     Route: 048
     Dates: start: 20170411, end: 20170414
  4. BAKUMONDO-TO [Concomitant]
     Active Substance: HERBALS
     Indication: BRONCHITIS BACTERIAL
     Dosage: 3 DF, DAILY
     Route: 048
     Dates: start: 20161231, end: 20170104
  5. BIOFERMIN R [Concomitant]
     Active Substance: BACILLUS SUBTILIS\LACTOBACILLUS ACIDOPHILUS\STREPTOCOCCUS FAECAIS
     Indication: DIARRHOEA
     Route: 048
     Dates: start: 20170403, end: 20170407
  6. DEXART [Concomitant]
     Active Substance: DEXAMETHASONE SODIUM PHOSPHATE
     Indication: PROPHYLAXIS
     Route: 042
     Dates: start: 20171013, end: 20171013
  7. DOCETAXEL. [Concomitant]
     Active Substance: DOCETAXEL
     Indication: LUNG NEOPLASM MALIGNANT
     Route: 042
     Dates: start: 20170516, end: 20170516
  8. ZOSYN [Concomitant]
     Active Substance: PIPERACILLIN SODIUM\TAZOBACTAM SODIUM
     Indication: FEBRILE NEUTROPENIA
     Route: 042
     Dates: start: 20170521, end: 20170529
  9. OMEGACIN [Concomitant]
     Active Substance: BIAPENEM
     Indication: PNEUMONIA
     Route: 042
     Dates: start: 20170311, end: 20170318
  10. GOREI-SAN [Concomitant]
     Active Substance: HERBALS
     Indication: DIARRHOEA
     Dosage: 3 DF, DAILY
     Route: 048
     Dates: start: 20170403, end: 20170407
  11. WHITE PETROLATUM [Concomitant]
     Active Substance: PETROLATUM
     Indication: PRURITUS
     Route: 062
     Dates: start: 20170407, end: 20170410
  12. PEGFILGRASTIM [Concomitant]
     Active Substance: PEGFILGRASTIM
     Indication: PROPHYLAXIS
     Route: 058
     Dates: start: 20170413, end: 20170413
  13. METOCLOPRAMIDE. [Concomitant]
     Active Substance: METOCLOPRAMIDE
     Indication: PANCREATITIS ACUTE
     Route: 042
     Dates: start: 20170417, end: 20170417
  14. REMINARON [Concomitant]
     Active Substance: GABEXATE MESYLATE
     Indication: PANCREATITIS ACUTE
     Route: 042
     Dates: start: 20170503, end: 20170508
  15. BIOFERMIN [Concomitant]
     Active Substance: BACILLUS SUBTILIS\LACTOBACILLUS ACIDOPHILUS\STREPTOCOCCUS FAECAIS
     Indication: PROPHYLAXIS
     Route: 048
     Dates: start: 20170413
  16. NINJIN-YOEI-TO [Concomitant]
     Indication: PROPHYLAXIS
     Dosage: 3 DF, DAILY
     Dates: end: 20170329
  17. CARBOCISTEINE [Concomitant]
     Active Substance: CARBOCYSTEINE
     Indication: CHRONIC OBSTRUCTIVE PULMONARY DISEASE
     Route: 048
     Dates: end: 20170329
  18. MELOXICAM. [Concomitant]
     Active Substance: MELOXICAM
     Indication: BACK PAIN
     Route: 048
     Dates: end: 20161225
  19. LORATADINE. [Concomitant]
     Active Substance: LORATADINE
     Indication: RASH
     Route: 048
     Dates: start: 20170411, end: 20170414
  20. TRAMADOL HYDROCHLORIDE. [Concomitant]
     Active Substance: TRAMADOL HYDROCHLORIDE
     Indication: CANCER PAIN
     Route: 048
     Dates: start: 20161216, end: 20170329
  21. DENOTAS [Concomitant]
     Active Substance: CALCIUM CARBONATE\CHOLECALCIFEROL\MAGNESIUM CARBONATE
     Indication: PROPHYLAXIS
     Dosage: 2 DF, DAILY
     Route: 048
     Dates: start: 20161228, end: 20170412
  22. DENOTAS [Concomitant]
     Active Substance: CALCIUM CARBONATE\CHOLECALCIFEROL\MAGNESIUM CARBONATE
     Indication: PROPHYLAXIS
     Dosage: 2 DF, DAILY
     Route: 048
     Dates: start: 20170529, end: 20170531
  23. DENOTAS [Concomitant]
     Active Substance: CALCIUM CARBONATE\CHOLECALCIFEROL\MAGNESIUM CARBONATE
     Indication: PROPHYLAXIS
     Dosage: 2 DF, DAILY
     Route: 048
     Dates: start: 20170704
  24. BIOFERMIN R [Concomitant]
     Active Substance: BACILLUS SUBTILIS\LACTOBACILLUS ACIDOPHILUS\STREPTOCOCCUS FAECAIS
     Indication: DIARRHOEA
     Route: 048
     Dates: start: 20161231, end: 20170104
  25. MAGMITT [Concomitant]
     Active Substance: MAGNESIUM OXIDE
     Indication: CONSTIPATION
     Route: 048
     Dates: start: 20170104, end: 20170322
  26. MAGMITT [Concomitant]
     Active Substance: MAGNESIUM OXIDE
     Indication: CONSTIPATION
     Route: 048
     Dates: start: 20170323, end: 20170430
  27. CALONAL [Concomitant]
     Active Substance: ACETAMINOPHEN
     Indication: FEBRILE NEUTROPENIA
     Dosage: 600.0MG AS REQUIRED
     Route: 048
     Dates: start: 20170207, end: 20170307
  28. DEXART [Concomitant]
     Active Substance: DEXAMETHASONE SODIUM PHOSPHATE
     Indication: PROPHYLAXIS
     Route: 042
     Dates: start: 20170915, end: 20170915
  29. CYRAMZA [Concomitant]
     Active Substance: RAMUCIRUMAB
     Indication: LUNG NEOPLASM MALIGNANT
     Route: 042
     Dates: start: 20170412, end: 20170412
  30. UREPEARL [Concomitant]
     Active Substance: UREA
     Indication: RASH
     Dosage: PROPER DOSE
     Route: 062
     Dates: start: 20170313, end: 20170731
  31. AVELOX [Concomitant]
     Active Substance: MOXIFLOXACIN HYDROCHLORIDE
     Indication: PROPHYLAXIS
     Route: 048
     Dates: start: 20170403, end: 20170406
  32. ABRAXANE [Concomitant]
     Active Substance: PACLITAXEL
     Route: 042
     Dates: start: 20170802, end: 20170802
  33. LORATADINE. [Concomitant]
     Active Substance: LORATADINE
     Indication: RASH
     Route: 048
     Dates: start: 20170207, end: 20170329
  34. LORATADINE. [Concomitant]
     Active Substance: LORATADINE
     Indication: DRY SKIN
     Route: 048
     Dates: start: 20170411, end: 20170414
  35. OPDIVO [Concomitant]
     Active Substance: NIVOLUMAB
     Indication: LUNG NEOPLASM MALIGNANT
     Route: 042
     Dates: start: 20170207, end: 20170207
  36. AUGMENTIN [Concomitant]
     Active Substance: AMOXICILLIN\CLAVULANATE POTASSIUM
     Indication: BRONCHITIS BACTERIAL
     Route: 048
     Dates: start: 20161231, end: 20170104
  37. TRAMCET [Concomitant]
     Active Substance: ACETAMINOPHEN\TRAMADOL
     Indication: CANCER PAIN
     Dosage: 8 DF, DAILY
     Route: 048
     Dates: start: 20170718
  38. DEXART [Concomitant]
     Active Substance: DEXAMETHASONE SODIUM PHOSPHATE
     Indication: PROPHYLAXIS
     Route: 042
     Dates: start: 20170802, end: 20170802
  39. DEXART [Concomitant]
     Active Substance: DEXAMETHASONE SODIUM PHOSPHATE
     Indication: PROPHYLAXIS
     Route: 042
     Dates: start: 20170809, end: 20170809
  40. DEXART [Concomitant]
     Active Substance: DEXAMETHASONE SODIUM PHOSPHATE
     Indication: PROPHYLAXIS
     Route: 042
     Dates: start: 20170929, end: 20170929
  41. DEXART [Concomitant]
     Active Substance: DEXAMETHASONE SODIUM PHOSPHATE
     Indication: PROPHYLAXIS
     Route: 042
     Dates: start: 20171006, end: 20171006
  42. POLARAMINE [Concomitant]
     Active Substance: DEXCHLORPHENIRAMINE MALEATE
     Indication: PROPHYLAXIS
     Route: 042
     Dates: start: 20170412, end: 20170412
  43. GRAN [Concomitant]
     Active Substance: FILGRASTIM
     Indication: FEBRILE NEUTROPENIA
     Route: 042
     Dates: start: 20170522, end: 20170523
  44. ZOSYN [Concomitant]
     Active Substance: PIPERACILLIN SODIUM\TAZOBACTAM SODIUM
     Indication: SMALL INTESTINE CARCINOMA
     Route: 042
     Dates: start: 20170308, end: 20170311
  45. ZOSYN [Concomitant]
     Active Substance: PIPERACILLIN SODIUM\TAZOBACTAM SODIUM
     Indication: SMALL INTESTINE CARCINOMA
     Route: 042
     Dates: start: 20170324, end: 20170403
  46. WHITE PETROLATUM [Concomitant]
     Active Substance: PETROLATUM
     Indication: DRY SKIN
     Route: 062
     Dates: start: 20170407, end: 20170410
  47. ROPION [Concomitant]
     Active Substance: FLURBIPROFEN AXETIL
     Indication: PANCREATITIS ACUTE
     Route: 042
     Dates: start: 20170503, end: 20170503
  48. REBAMIPIDE [Concomitant]
     Active Substance: REBAMIPIDE
     Indication: GASTRIC ULCER
     Route: 048
     Dates: start: 20170523
  49. CEFTAZIDIME PENTAHYDRATE [Concomitant]
     Active Substance: CEFTAZIDIME
     Indication: PROPHYLAXIS
     Route: 042
     Dates: start: 20170529, end: 20170530
  50. MECOBALAMIN [Concomitant]
     Active Substance: METHYLCOBALAMIN
     Route: 030
     Dates: start: 20170718, end: 20170718
  51. ABRAXANE [Concomitant]
     Active Substance: PACLITAXEL
     Route: 042
     Dates: start: 20170915, end: 20170915
  52. LORATADINE. [Concomitant]
     Active Substance: LORATADINE
     Indication: DRY SKIN
     Route: 048
     Dates: start: 20170207, end: 20170329
  53. OPDIVO [Concomitant]
     Active Substance: NIVOLUMAB
     Indication: LUNG NEOPLASM MALIGNANT
     Route: 042
     Dates: start: 20161227, end: 20161227
  54. AMOXICILLIN. [Concomitant]
     Active Substance: AMOXICILLIN
     Indication: BRONCHITIS BACTERIAL
     Route: 048
     Dates: start: 20161231, end: 20170101
  55. CALONAL [Concomitant]
     Active Substance: ACETAMINOPHEN
     Indication: PYREXIA
     Route: 048
     Dates: start: 20170107, end: 20170107
  56. CALONAL [Concomitant]
     Active Substance: ACETAMINOPHEN
     Indication: PYREXIA
     Dosage: 600.0MG AS REQUIRED
     Route: 048
     Dates: start: 20170207, end: 20170307
  57. CALONAL [Concomitant]
     Active Substance: ACETAMINOPHEN
     Indication: PYREXIA
     Dosage: 600.0MG AS REQUIRED
     Route: 048
     Dates: start: 20170207, end: 20170307
  58. CALONAL [Concomitant]
     Active Substance: ACETAMINOPHEN
     Indication: FEBRILE NEUTROPENIA
     Dosage: 600.0MG AS REQUIRED
     Route: 048
     Dates: start: 20170308, end: 20170312
  59. POLARAMINE [Concomitant]
     Active Substance: DEXCHLORPHENIRAMINE MALEATE
     Indication: PROPHYLAXIS
     Route: 042
     Dates: start: 20170301, end: 20170301
  60. DOCETAXEL. [Concomitant]
     Active Substance: DOCETAXEL
     Indication: LUNG NEOPLASM MALIGNANT
     Route: 042
     Dates: start: 20170301, end: 20170301
  61. RAMOSETRON HYDROCHLORIDE [Concomitant]
     Active Substance: RAMOSETRON HYDROCHLORIDE
     Indication: NAUSEA
     Route: 042
     Dates: start: 20170305, end: 20170305
  62. ZOSYN [Concomitant]
     Active Substance: PIPERACILLIN SODIUM\TAZOBACTAM SODIUM
     Indication: FEBRILE NEUTROPENIA
     Route: 042
     Dates: start: 20170308, end: 20170311
  63. ZOSYN [Concomitant]
     Active Substance: PIPERACILLIN SODIUM\TAZOBACTAM SODIUM
     Indication: SMALL INTESTINE CARCINOMA
     Route: 042
     Dates: start: 20170521, end: 20170529
  64. OMEGACIN [Concomitant]
     Active Substance: BIAPENEM
     Indication: PROPHYLAXIS
     Route: 042
     Dates: start: 20170311, end: 20170318
  65. WYSTAL [Concomitant]
     Active Substance: CEFOPERAZONE SODIUM\SULBACTAM SODIUM
     Indication: SMALL INTESTINE CARCINOMA
     Route: 042
     Dates: start: 20170417, end: 20170503
  66. NAUZELIN [Concomitant]
     Active Substance: DOMPERIDONE
     Indication: NAUSEA
     Dosage: 60 MG/DAY PRN
     Route: 054
     Dates: start: 20170327, end: 20170330
  67. METOCLOPRAMIDE. [Concomitant]
     Active Substance: METOCLOPRAMIDE
     Indication: PANCREATITIS ACUTE
     Route: 042
     Dates: start: 20170503, end: 20170503
  68. MORPHINE HYDROCHLORIDE [Concomitant]
     Active Substance: MORPHINE HYDROCHLORIDE
     Indication: PANCREATITIS ACUTE
     Route: 042
     Dates: start: 20170503, end: 20170503
  69. MOHRUS TAPE L [Concomitant]
     Active Substance: KETOPROFEN
     Indication: PERIPHERAL SWELLING
     Route: 062
     Dates: start: 20170525, end: 20170531
  70. DOMPERIDONE [Concomitant]
     Active Substance: DOMPERIDONE
     Route: 048
     Dates: start: 20170908
  71. BETAHISTINE MESYLATE [Concomitant]
     Active Substance: BETAHISTINE MESILATE
     Route: 048
     Dates: start: 20171006
  72. HERBAL NOS [Concomitant]
     Active Substance: HERBALS
     Dosage: 3 DF/DAY
     Route: 048
     Dates: start: 20171027
  73. RANMARK [Concomitant]
     Active Substance: DENOSUMAB
     Indication: METASTASES TO BONE
     Route: 058
     Dates: start: 20170124, end: 20170124
  74. RANMARK [Concomitant]
     Active Substance: DENOSUMAB
     Indication: METASTASES TO BONE
     Route: 058
     Dates: start: 20170929, end: 20170929
  75. MAGMITT [Concomitant]
     Active Substance: MAGNESIUM OXIDE
     Indication: CONSTIPATION
     Route: 048
     Dates: start: 20170908
  76. CALONAL [Concomitant]
     Active Substance: ACETAMINOPHEN
     Indication: PYREXIA
     Route: 048
     Dates: start: 20170107, end: 20170107
  77. AMBROXOL HYDROCHLORIDE [Concomitant]
     Active Substance: AMBROXOL HYDROCHLORIDE
     Indication: BRONCHITIS BACTERIAL
     Route: 048
     Dates: start: 20170107, end: 20170112
  78. DEXART [Concomitant]
     Active Substance: DEXAMETHASONE SODIUM PHOSPHATE
     Indication: PROPHYLAXIS
     Route: 042
     Dates: start: 20170412, end: 20170412
  79. DEXART [Concomitant]
     Active Substance: DEXAMETHASONE SODIUM PHOSPHATE
     Indication: PROPHYLAXIS
     Route: 042
     Dates: start: 20170816, end: 20170816
  80. CYRAMZA [Concomitant]
     Active Substance: RAMUCIRUMAB
     Indication: LUNG NEOPLASM MALIGNANT
     Route: 042
     Dates: start: 20170301, end: 20170301
  81. OMEGACIN [Concomitant]
     Active Substance: BIAPENEM
     Indication: PROPHYLAXIS
     Route: 042
     Dates: start: 20170504, end: 20170511
  82. WYSTAL [Concomitant]
     Active Substance: CEFOPERAZONE SODIUM\SULBACTAM SODIUM
     Indication: SMALL INTESTINE CARCINOMA
     Route: 042
     Dates: start: 20170319, end: 20170320
  83. PEGFILGRASTIM [Concomitant]
     Active Substance: PEGFILGRASTIM
     Indication: PROPHYLAXIS
     Route: 058
     Dates: start: 20170518, end: 20170518
  84. METOCLOPRAMIDE. [Concomitant]
     Active Substance: METOCLOPRAMIDE
     Indication: SMALL INTESTINE CARCINOMA
     Route: 042
     Dates: start: 20170417, end: 20170417
  85. TAKECAB [Concomitant]
     Active Substance: VONOPRAZAN FUMURATE
     Indication: GASTRIC ULCER
     Route: 048
     Dates: start: 20170518
  86. ZYPREXA [Concomitant]
     Active Substance: OLANZAPINE
     Route: 048
     Dates: start: 20171014, end: 20171016
  87. LORATADINE. [Concomitant]
     Active Substance: LORATADINE
     Indication: RHINITIS ALLERGIC
     Route: 048
     Dates: start: 20161118, end: 20161231
  88. LORATADINE. [Concomitant]
     Active Substance: LORATADINE
     Indication: DRY SKIN
     Route: 048
     Dates: start: 20161118, end: 20161231
  89. LORATADINE. [Concomitant]
     Active Substance: LORATADINE
     Indication: RHINITIS ALLERGIC
     Route: 048
     Dates: start: 20170207, end: 20170329
  90. OPDIVO [Concomitant]
     Active Substance: NIVOLUMAB
     Indication: LUNG NEOPLASM MALIGNANT
     Route: 042
     Dates: start: 20170110, end: 20170110
  91. OPDIVO [Concomitant]
     Active Substance: NIVOLUMAB
     Indication: LUNG NEOPLASM MALIGNANT
     Route: 042
     Dates: start: 20170221, end: 20170221
  92. RANMARK [Concomitant]
     Active Substance: DENOSUMAB
     Indication: METASTASES TO BONE
     Route: 058
     Dates: start: 20171027
  93. BIOFERMIN R [Concomitant]
     Active Substance: BACILLUS SUBTILIS\LACTOBACILLUS ACIDOPHILUS\STREPTOCOCCUS FAECAIS
     Indication: PROPHYLAXIS
     Route: 048
     Dates: start: 20170403, end: 20170407
  94. CALONAL [Concomitant]
     Active Substance: ACETAMINOPHEN
     Indication: FEBRILE NEUTROPENIA
     Route: 048
     Dates: start: 20170107, end: 20170107
  95. CALONAL [Concomitant]
     Active Substance: ACETAMINOPHEN
     Indication: PYREXIA
     Dosage: 600.0MG AS REQUIRED
     Route: 048
     Dates: start: 20170308, end: 20170312
  96. DEXART [Concomitant]
     Active Substance: DEXAMETHASONE SODIUM PHOSPHATE
     Indication: PROPHYLAXIS
     Route: 042
     Dates: start: 20170301, end: 20170301
  97. DEXART [Concomitant]
     Active Substance: DEXAMETHASONE SODIUM PHOSPHATE
     Indication: PROPHYLAXIS
     Route: 042
     Dates: start: 20170908, end: 20170908
  98. DOCETAXEL. [Concomitant]
     Active Substance: DOCETAXEL
     Indication: LUNG NEOPLASM MALIGNANT
     Route: 042
     Dates: start: 20170412, end: 20170412
  99. RAMOSETRON HYDROCHLORIDE [Concomitant]
     Active Substance: RAMOSETRON HYDROCHLORIDE
     Indication: NAUSEA
     Route: 042
     Dates: start: 20170307, end: 20170307
  100. OMEGACIN [Concomitant]
     Active Substance: BIAPENEM
     Indication: PNEUMONIA
     Route: 042
     Dates: start: 20170504, end: 20170511
  101. WYSTAL [Concomitant]
     Active Substance: CEFOPERAZONE SODIUM\SULBACTAM SODIUM
     Indication: PROPHYLAXIS
     Route: 042
     Dates: start: 20170319, end: 20170320
  102. CEFTRIAXONE SODIUM. [Concomitant]
     Active Substance: CEFTRIAXONE SODIUM
     Indication: FEBRILE NEUTROPENIA
     Route: 042
     Dates: start: 20170520, end: 20170521
  103. RESTAMIN [Concomitant]
     Active Substance: DIPHENHYDRAMINE
     Indication: RASH
     Route: 062
     Dates: start: 20170524, end: 20170531
  104. ABRAXANE [Concomitant]
     Active Substance: PACLITAXEL
     Route: 042
     Dates: start: 20170908, end: 20170908
  105. ABRAXANE [Concomitant]
     Active Substance: PACLITAXEL
     Route: 042
     Dates: start: 20170929, end: 20170929
  106. ABRAXANE [Concomitant]
     Active Substance: PACLITAXEL
     Route: 042
     Dates: start: 20171006, end: 20171006
  107. TS-1 [Concomitant]
     Active Substance: GIMERACIL\OTERACIL\TEGAFUR
     Route: 048
     Dates: start: 20171110
  108. EKLIRA GENUAIR [Suspect]
     Active Substance: ACLIDINIUM BROMIDE
     Indication: CHRONIC OBSTRUCTIVE PULMONARY DISEASE
     Route: 055
     Dates: start: 20161118, end: 20170227
  109. OPDIVO [Concomitant]
     Active Substance: NIVOLUMAB
     Indication: LUNG NEOPLASM MALIGNANT
     Route: 042
     Dates: start: 20170124, end: 20170124
  110. RANMARK [Concomitant]
     Active Substance: DENOSUMAB
     Indication: METASTASES TO BONE
     Route: 058
     Dates: start: 20161228, end: 20161228
  111. RANMARK [Concomitant]
     Active Substance: DENOSUMAB
     Indication: METASTASES TO BONE
     Route: 058
     Dates: start: 20170221, end: 20170221
  112. MS CONTIN [Concomitant]
     Active Substance: MORPHINE SULFATE
     Indication: CANCER PAIN
     Route: 048
     Dates: start: 20170104, end: 20170526
  113. TRAMCET [Concomitant]
     Active Substance: ACETAMINOPHEN\TRAMADOL
     Indication: CANCER PAIN
     Dosage: 4 DF, DAILY
     Route: 048
     Dates: start: 20170527, end: 20170717
  114. CALONAL [Concomitant]
     Active Substance: ACETAMINOPHEN
     Indication: PYREXIA
     Dosage: 600.0MG AS REQUIRED
     Route: 048
     Dates: start: 20170308, end: 20170312
  115. DEXART [Concomitant]
     Active Substance: DEXAMETHASONE SODIUM PHOSPHATE
     Indication: PROPHYLAXIS
     Route: 042
     Dates: start: 20170516, end: 20170516
  116. GRAN [Concomitant]
     Active Substance: FILGRASTIM
     Indication: FEBRILE NEUTROPENIA
     Route: 042
     Dates: start: 20170308, end: 20170311
  117. ZOSYN [Concomitant]
     Active Substance: PIPERACILLIN SODIUM\TAZOBACTAM SODIUM
     Indication: FEBRILE NEUTROPENIA
     Route: 042
     Dates: start: 20170324, end: 20170403
  118. FEXOFENADINE HYDROCHLORIDE. [Concomitant]
     Active Substance: FEXOFENADINE HYDROCHLORIDE
     Indication: RASH
     Route: 048
     Dates: start: 20170316, end: 20170318
  119. WYSTAL [Concomitant]
     Active Substance: CEFOPERAZONE SODIUM\SULBACTAM SODIUM
     Indication: PROPHYLAXIS
     Route: 042
     Dates: start: 20170417, end: 20170503
  120. METOCLOPRAMIDE. [Concomitant]
     Active Substance: METOCLOPRAMIDE
     Indication: SMALL INTESTINE CARCINOMA
     Route: 042
     Dates: start: 20170503, end: 20170503
  121. SOSEGON [Concomitant]
     Active Substance: PENTAZOCINE
     Indication: PANCREATITIS ACUTE
     Route: 042
     Dates: start: 20170503, end: 20170503
  122. ALLOID G [Concomitant]
     Active Substance: SODIUM ALGINATE
     Indication: GASTRIC ULCER
     Route: 048
     Dates: start: 20170518, end: 20170601
  123. INTRALIPOS [Concomitant]
     Active Substance: SOYBEAN OIL
     Indication: DECREASED APPETITE
     Route: 042
     Dates: start: 20170526, end: 20170606
  124. ELNEOPA NO. 1 [Concomitant]
     Indication: DECREASED APPETITE
     Route: 042
     Dates: start: 20170531, end: 20170601
  125. ABRAXANE [Concomitant]
     Active Substance: PACLITAXEL
     Route: 042
     Dates: start: 20170816, end: 20170816
  126. EKLIRA GENUAIR [Suspect]
     Active Substance: ACLIDINIUM BROMIDE
     Indication: CHRONIC OBSTRUCTIVE PULMONARY DISEASE
     Route: 055
     Dates: start: 20170411
  127. RANMARK [Concomitant]
     Active Substance: DENOSUMAB
     Indication: METASTASES TO BONE
     Route: 058
     Dates: start: 20170718, end: 20170718
  128. BIOFERMIN R [Concomitant]
     Active Substance: BACILLUS SUBTILIS\LACTOBACILLUS ACIDOPHILUS\STREPTOCOCCUS FAECAIS
     Indication: PROPHYLAXIS
     Route: 048
     Dates: start: 20161231, end: 20170104
  129. PERORIC [Concomitant]
     Active Substance: DOMPERIDONE
     Indication: PROPHYLAXIS
     Route: 048
     Dates: start: 20170104, end: 20170703
  130. SP [Concomitant]
     Indication: BRONCHITIS BACTERIAL
     Route: 048
     Dates: start: 20170107, end: 20170112
  131. DEXART [Concomitant]
     Active Substance: DEXAMETHASONE SODIUM PHOSPHATE
     Indication: PROPHYLAXIS
     Route: 042
     Dates: start: 20170901, end: 20170901
  132. POLARAMINE [Concomitant]
     Active Substance: DEXCHLORPHENIRAMINE MALEATE
     Indication: PROPHYLAXIS
     Route: 042
     Dates: start: 20170516, end: 20170516
  133. CYRAMZA [Concomitant]
     Active Substance: RAMUCIRUMAB
     Indication: LUNG NEOPLASM MALIGNANT
     Route: 042
     Dates: start: 20170516, end: 20170516
  134. WYSTAL [Concomitant]
     Active Substance: CEFOPERAZONE SODIUM\SULBACTAM SODIUM
     Indication: PROPHYLAXIS
     Route: 042
     Dates: start: 20170318, end: 20170318
  135. WYSTAL [Concomitant]
     Active Substance: CEFOPERAZONE SODIUM\SULBACTAM SODIUM
     Indication: SMALL INTESTINE CARCINOMA
     Route: 042
     Dates: start: 20170318, end: 20170318
  136. PANVITAN [Concomitant]
     Route: 048
     Dates: start: 20170718, end: 20170803
  137. ABRAXANE [Concomitant]
     Active Substance: PACLITAXEL
     Route: 042
     Dates: start: 20170809, end: 20170809
  138. ABRAXANE [Concomitant]
     Active Substance: PACLITAXEL
     Route: 042
     Dates: start: 20170901, end: 20170901
  139. ABRAXANE [Concomitant]
     Active Substance: PACLITAXEL
     Route: 042
     Dates: start: 20171013, end: 20171013

REACTIONS (10)
  - Febrile neutropenia [Unknown]
  - Decreased appetite [Recovered/Resolved]
  - Lung neoplasm malignant [Unknown]
  - Pancreatitis acute [Unknown]
  - Adverse reaction [Unknown]
  - Gastric ulcer [Unknown]
  - Bronchitis bacterial [Recovered/Resolved]
  - Biliary neoplasm [Recovered/Resolved]
  - Vertigo [Unknown]
  - Pneumonia [Recovered/Resolved]

NARRATIVE: CASE EVENT DATE: 20161226
